FAERS Safety Report 19304003 (Version 1)
Quarter: 2021Q2

REPORT INFORMATION
  Report Type: Spontaneous
  Country: US (occurrence: US)
  Receive Date: 20210525
  Receipt Date: 20210525
  Transmission Date: 20210717
  Serious: Yes (Other)
  Sender: FDA-Public Use
  Company Number: US-GW PHARMA-202105USGW02523

PATIENT

DRUGS (1)
  1. EPIDIOLEX [Suspect]
     Active Substance: CANNABIDIOL
     Indication: PRODUCT USED FOR UNKNOWN INDICATION
     Dosage: 250 MILLIGRAM, BID (FIRST SHIPPED 16?DEC?2020)
     Route: 048
     Dates: start: 202012, end: 202102

REACTIONS (3)
  - Insurance issue [Unknown]
  - Product dose omission issue [Unknown]
  - Seizure [Unknown]

NARRATIVE: CASE EVENT DATE: 2021
